FAERS Safety Report 15852868 (Version 3)
Quarter: 2021Q1

REPORT INFORMATION
  Report Type: Report from Study
  Country: CA (occurrence: CA)
  Receive Date: 20190122
  Receipt Date: 20210217
  Transmission Date: 20210419
  Serious: Yes (Other)
  Sender: FDA-Public Use
  Company Number: CA-AUROBINDO-AUR-APL-2019-003010

PATIENT
  Age: 23 Year
  Sex: Female

DRUGS (4)
  1. QUETIAPINE. [Suspect]
     Active Substance: QUETIAPINE
     Indication: PRODUCT USED FOR UNKNOWN INDICATION
     Dosage: 75 MILLIGRAM, ONCE A DAY
     Route: 048
  2. CITALOPRAM [Suspect]
     Active Substance: CITALOPRAM HYDROBROMIDE
     Indication: PRODUCT USED FOR UNKNOWN INDICATION
     Dosage: 10 MILLIGRAM, EVERY WEEK
     Route: 065
  3. CITALOPRAM [Suspect]
     Active Substance: CITALOPRAM HYDROBROMIDE
     Dosage: UNK,DOSE WAS DOUBLED
     Route: 065
  4. QUETIAPINE FILM?COATED TABLET [Suspect]
     Active Substance: QUETIAPINE
     Indication: PRODUCT USED FOR UNKNOWN INDICATION
     Dosage: 25 MILLIGRAM, DAILY
     Route: 048

REACTIONS (12)
  - Pressure of speech [Recovering/Resolving]
  - Weight increased [Recovering/Resolving]
  - Insomnia [Recovering/Resolving]
  - Agitation [Recovering/Resolving]
  - Energy increased [Recovering/Resolving]
  - Bipolar II disorder [Recovering/Resolving]
  - Investigation [Recovering/Resolving]
  - Tachyphrenia [Recovering/Resolving]
  - Depression [Recovering/Resolving]
  - Irritability [Recovering/Resolving]
  - Hypomania [Recovering/Resolving]
  - Disease progression [Recovering/Resolving]
